FAERS Safety Report 24093677 (Version 3)
Quarter: 2025Q1

REPORT INFORMATION
  Report Type: Spontaneous
  Country: US (occurrence: US)
  Receive Date: 20240715
  Receipt Date: 20250101
  Transmission Date: 20250409
  Serious: Yes (Hospitalization)
  Sender: ROCHE
  Company Number: US-ROCHE-10000024989

PATIENT
  Sex: Male

DRUGS (17)
  1. XOLAIR PFS [Suspect]
     Active Substance: OMALIZUMAB
     Indication: Bacterial infection
     Route: 058
  2. XOLAIR PFS [Suspect]
     Active Substance: OMALIZUMAB
     Route: 058
  3. AMLODIPINE [Concomitant]
     Active Substance: AMLODIPINE BESYLATE
  4. BENZONATATE [Concomitant]
     Active Substance: BENZONATATE
  5. HYOSCYAMINE [Concomitant]
     Active Substance: HYOSCYAMINE
     Route: 058
  6. LANSOPRAZOLE [Concomitant]
     Active Substance: LANSOPRAZOLE
  7. MELOXICAM [Concomitant]
     Active Substance: MELOXICAM
  8. PREDNISONE [Concomitant]
     Active Substance: PREDNISONE
  9. SUCRALFATE [Concomitant]
     Active Substance: SUCRALFATE
  10. TRELEGY ELLI [Concomitant]
  11. PROCRIT SOL [Concomitant]
  12. ALBUTEROL [Concomitant]
     Active Substance: ALBUTEROL
  13. ALBUTEROL [Concomitant]
     Active Substance: ALBUTEROL
  14. MILK OF MAGN [Concomitant]
  15. MONTELUKAST [Concomitant]
     Active Substance: MONTELUKAST
  16. MULTIVITAMIN LIQ [Concomitant]
  17. OXYBUTYNIN C [Concomitant]

REACTIONS (2)
  - Off label use [Unknown]
  - Pneumonia [Unknown]
